FAERS Safety Report 6339253-1 (Version None)
Quarter: 2009Q3

REPORT INFORMATION
  Report Type: 
  Country: None (occurrence: None)
  Receive Date: 20090903
  Receipt Date: 20090828
  Transmission Date: 20100115
  Serious: Yes (Congenital Anomaly)
  Sender: FDA-Public Use
  Company Number: A0748200A

PATIENT
  Sex: Male

DRUGS (7)
  1. PAXIL [Suspect]
     Indication: DEPRESSION
     Dosage: 10MG PER DAY
     Dates: start: 19940101, end: 19950101
  2. PAXIL CR [Suspect]
     Indication: DEPRESSION
     Dosage: 10MG PER DAY
     Dates: start: 19940101, end: 19950101
  3. VITAMIN TAB [Concomitant]
  4. SYNTHROID [Concomitant]
     Dosage: .15MG PER DAY
  5. ZOLOFT [Concomitant]
     Dosage: 100MG PER DAY
  6. AMBIEN [Concomitant]
     Dosage: 5MG PER DAY
  7. SOMA [Concomitant]

REACTIONS (5)
  - ASTHMA [None]
  - BRONCHITIS [None]
  - COGNITIVE DISORDER [None]
  - DRUG EXPOSURE DURING PREGNANCY [None]
  - MULTIPLE CONGENITAL ABNORMALITIES [None]
